FAERS Safety Report 5065749-9 (Version None)
Quarter: 2006Q3

REPORT INFORMATION
  Report Type: 
  Country: None (occurrence: None)
  Receive Date: 20060714
  Receipt Date: 20060516
  Transmission Date: 20061208
  Serious: No
  Sender: FDA-Public Use
  Company Number: 2006SP002090

PATIENT
  Age: 37 Year
  Sex: Female
  Weight: 50.3493 kg

DRUGS (8)
  1. LUNESTA [Suspect]
     Indication: INSOMNIA
     Dosage: 3 MG;HS;ORAL
     Route: 048
     Dates: start: 20050101, end: 20051201
  2. PREDNISONE [Concomitant]
  3. TYLENOL W/ CODEINE NO. 4 [Concomitant]
  4. ENTOCORT [Concomitant]
  5. PREVACID [Concomitant]
  6. DOC-Q-LACE [Concomitant]
  7. TRAZODONE HCL [Concomitant]
  8. PROPOXYPHENE HYDROCHLORIDE [Concomitant]

REACTIONS (2)
  - HALLUCINATION [None]
  - PARADOXICAL DRUG REACTION [None]
